FAERS Safety Report 8503842-6 (Version None)
Quarter: 2012Q3

REPORT INFORMATION
  Report Type: 
  Country: None (occurrence: None)
  Receive Date: 20120711
  Receipt Date: 20120629
  Transmission Date: 20120928
  Serious: Yes (Other)
  Sender: FDA-Public Use
  Company Number: NO-BRISTOL-MYERS SQUIBB COMPANY-16724890

PATIENT

DRUGS (1)
  1. MEGACE [Suspect]

REACTIONS (3)
  - RENAL IMPAIRMENT [None]
  - RASH [None]
  - GENERALISED ERYTHEMA [None]
